FAERS Safety Report 4594841-8 (Version None)
Quarter: 2005Q1

REPORT INFORMATION
  Report Type: 
  Country: None (occurrence: None)
  Receive Date: 20050223
  Receipt Date: 20050216
  Transmission Date: 20050727
  Serious: Yes (Hospitalization, Other)
  Sender: FDA-Public Use
  Company Number: FRWYE309429DEC04

PATIENT
  Age: 32 Year
  Sex: Female

DRUGS (2)
  1. EFFEXOR [Suspect]
     Dosage: 30 TABLETS ORAL
     Route: 048
     Dates: start: 20041228, end: 20041228
  2. AMITRIPTYLINE HCL [Suspect]
     Dosage: 1 TABLET ORAL
     Route: 048
     Dates: start: 20041228, end: 20041228

REACTIONS (6)
  - DEPRESSED LEVEL OF CONSCIOUSNESS [None]
  - ELECTROCARDIOGRAM QRS COMPLEX PROLONGED [None]
  - ELECTROCARDIOGRAM QT PROLONGED [None]
  - INTENTIONAL MISUSE [None]
  - SUICIDE ATTEMPT [None]
  - TACHYCARDIA [None]
